FAERS Safety Report 21290395 (Version 16)
Quarter: 2025Q2

REPORT INFORMATION
  Report Type: Report from Study
  Country: US (occurrence: US)
  Receive Date: 20220902
  Receipt Date: 20250527
  Transmission Date: 20250717
  Serious: Yes (Hospitalization, Other)
  Sender: TAKEDA
  Company Number: US-TAKEDA-2022TUS060554

PATIENT
  Sex: Female

DRUGS (3)
  1. HUMAN IMMUNOGLOBULIN G [Suspect]
     Active Substance: HUMAN IMMUNOGLOBULIN G
     Indication: Immunodeficiency common variable
  2. HUMAN IMMUNOGLOBULIN G [Suspect]
     Active Substance: HUMAN IMMUNOGLOBULIN G
     Indication: Primary immunodeficiency syndrome
  3. PREDNISONE [Suspect]
     Active Substance: PREDNISONE
     Indication: Product used for unknown indication

REACTIONS (34)
  - Dysphagia [Unknown]
  - Lumbar puncture [Unknown]
  - Internal haemorrhage [Unknown]
  - Craniofacial fracture [Unknown]
  - Hypoaesthesia [Unknown]
  - Pneumonia [Unknown]
  - Systemic lupus erythematosus [Unknown]
  - Intracranial pressure increased [Unknown]
  - Seizure [Not Recovered/Not Resolved]
  - Pulmonary embolism [Unknown]
  - Bone pain [Unknown]
  - Fall [Unknown]
  - COVID-19 [Not Recovered/Not Resolved]
  - Subcutaneous abscess [Unknown]
  - Ligament sprain [Unknown]
  - Cellulitis [Unknown]
  - Drug hypersensitivity [Unknown]
  - Skin ulcer [Unknown]
  - Fungal infection [Unknown]
  - Splenomegaly [Unknown]
  - Asthenia [Unknown]
  - Influenza like illness [Unknown]
  - Back pain [Unknown]
  - Ovarian mass [Unknown]
  - Memory impairment [Unknown]
  - Antinuclear antibody positive [Unknown]
  - Limb injury [Unknown]
  - Red blood cell sedimentation rate increased [Unknown]
  - Immune system disorder [Unknown]
  - Complication associated with device [Unknown]
  - Concussion [Unknown]
  - Malaise [Unknown]
  - Vomiting [Unknown]
  - Headache [Unknown]
